FAERS Safety Report 7892122-8 (Version None)
Quarter: 2011Q4

REPORT INFORMATION
  Report Type: 
  Country: None (occurrence: None)
  Receive Date: 20111103
  Receipt Date: 20110815
  Transmission Date: 20120403
  Serious: No
  Sender: FDA-Public Use
  Company Number: US-AMGEN-USASP2011041440

PATIENT
  Age: 40 Year
  Sex: Female

DRUGS (1)
  1. ENBREL [Suspect]
     Indication: ANKYLOSING SPONDYLITIS
     Dosage: 50 MG, QWK
     Dates: start: 20100511

REACTIONS (6)
  - INFECTION SUSCEPTIBILITY INCREASED [None]
  - BRONCHITIS [None]
  - SINUS DISORDER [None]
  - MALAISE [None]
  - HEADACHE [None]
  - NASOPHARYNGITIS [None]
